FAERS Safety Report 13324277 (Version 1)
Quarter: 2017Q1

REPORT INFORMATION
  Report Type: Spontaneous
  Country: CH (occurrence: CH)
  Receive Date: 20170310
  Receipt Date: 20170310
  Transmission Date: 20170428
  Serious: Yes (Hospitalization)
  Sender: FDA-Public Use
  Company Number: CH-MUNDIPHARMA DS AND PHARMACOVIGILANCE-GBR-2017-0043873

PATIENT
  Age: 74 Year
  Sex: Female

DRUGS (11)
  1. SIRDALUD [Concomitant]
     Active Substance: TIZANIDINE
     Dosage: UNK
     Dates: end: 20170110
  2. LAXOBERON [Concomitant]
     Active Substance: SODIUM PICOSULFATE
     Dosage: 10-12 DROPS/AS NEEDED/DAY
  3. OXYNORM [Suspect]
     Active Substance: OXYCODONE HYDROCHLORIDE
     Indication: PRODUCT USED FOR UNKNOWN INDICATION
     Dosage: 2-3X10 MG/DAY
     Route: 065
  4. CYMBALTA [Suspect]
     Active Substance: DULOXETINE HYDROCHLORIDE
     Indication: PRODUCT USED FOR UNKNOWN INDICATION
     Dosage: 120 MG, DAILY
     Route: 065
     Dates: start: 201602, end: 20170209
  5. FEMARA [Suspect]
     Active Substance: LETROZOLE
     Indication: HORMONE THERAPY
     Dosage: 2.5 MG, DAILY
     Route: 048
     Dates: start: 2014, end: 20170204
  6. DUROGESIC [Concomitant]
     Active Substance: FENTANYL
     Dosage: 100 MCG, Q72H
     Route: 062
     Dates: start: 201602
  7. COVERSUM [Concomitant]
     Active Substance: PERINDOPRIL
     Dosage: 5 MG, DAILY
  8. TEMESTA                            /00273201/ [Concomitant]
     Active Substance: LORAZEPAM
     Dosage: 2.5 MG, DAILY
  9. DAFALGAN [Concomitant]
     Active Substance: ACETAMINOPHEN
     Dosage: 1 G, QD PRN
  10. DUROGESIC [Concomitant]
     Active Substance: FENTANYL
     Dosage: 50 MCG, Q72H
     Route: 062
     Dates: end: 20170207
  11. TRANSIPEG                          /00754501/ [Concomitant]
     Active Substance: POLYETHYLENE GLYCOL 3350
     Dosage: 2 SACHET, DAILY

REACTIONS (9)
  - Ecchymosis [Not Recovered/Not Resolved]
  - Muscle spasms [Not Recovered/Not Resolved]
  - Asthenia [Not Recovered/Not Resolved]
  - Oedema [Not Recovered/Not Resolved]
  - Arthralgia [Not Recovered/Not Resolved]
  - Blood pressure increased [Not Recovered/Not Resolved]
  - Tremor [Not Recovered/Not Resolved]
  - Alopecia [Not Recovered/Not Resolved]
  - Hyperhidrosis [Not Recovered/Not Resolved]

NARRATIVE: CASE EVENT DATE: 201609
